FAERS Safety Report 12581583 (Version 2)
Quarter: 2016Q3

REPORT INFORMATION
  Report Type: Spontaneous
  Country: US (occurrence: US)
  Receive Date: 20160721
  Receipt Date: 20160722
  Transmission Date: 20161109
  Serious: Yes (Other)
  Sender: FDA-Public Use
  Company Number: US-ROCHE-1798636

PATIENT
  Age: 60 Year
  Sex: Female

DRUGS (2)
  1. RITUXAN [Suspect]
     Active Substance: RITUXIMAB
     Indication: RHEUMATOID ARTHRITIS
     Dosage: ON 18-JUL-2016, STARTED AT 12, STOPPED AT 4PM
     Route: 041
     Dates: start: 201508
  2. BENADRYL [Concomitant]
     Active Substance: DIPHENHYDRAMINE HYDROCHLORIDE

REACTIONS (8)
  - Headache [Recovered/Resolved]
  - Dysphagia [Recovered/Resolved]
  - Ear pruritus [Unknown]
  - Sensation of foreign body [Recovered/Resolved]
  - Feeling jittery [Recovering/Resolving]
  - Ear discomfort [Unknown]
  - Drug ineffective [Unknown]
  - Swelling [Not Recovered/Not Resolved]

NARRATIVE: CASE EVENT DATE: 20160718
